FAERS Safety Report 13114116 (Version 2)
Quarter: 2017Q1

REPORT INFORMATION
  Report Type: Spontaneous
  Country: FR (occurrence: FR)
  Receive Date: 20170113
  Receipt Date: 20170210
  Transmission Date: 20170428
  Serious: Yes (Hospitalization)
  Sender: FDA-Public Use
  Company Number: FR-TEVA-727673ROM

PATIENT
  Age: 75 Year
  Sex: Female

DRUGS (9)
  1. DEPO-MEDROL [Suspect]
     Active Substance: METHYLPREDNISOLONE ACETATE
     Route: 037
     Dates: start: 20161226, end: 20161226
  2. PREDNISONE. [Concomitant]
     Active Substance: PREDNISONE
     Dosage: FIRST COURSE OF CHVP (CYCLOPHOSPHAMIDE, DOXORUBICINE, ETOPOSIDE AND PREDNISONE)
     Dates: start: 20161130, end: 20161130
  3. MABTHERA [Suspect]
     Active Substance: RITUXIMAB
     Route: 042
     Dates: start: 20161226, end: 20161227
  4. ETOPOSIDE MYLAN [Suspect]
     Active Substance: ETOPOSIDE
     Route: 042
     Dates: start: 20161226, end: 20161226
  5. ARACYTINE [Suspect]
     Active Substance: CYTARABINE
     Route: 037
     Dates: start: 20161226, end: 20161226
  6. PREDNISONE. [Concomitant]
     Active Substance: PREDNISONE
     Dosage: SECOND COURSE OF CHVP (CYCLOPHOSPHAMIDE, DOXORUBICINE, ETOPOSIDE AND PREDNISONE)
     Dates: start: 20161226, end: 20161226
  7. DOXORUBICINE TEVA [Suspect]
     Active Substance: DOXORUBICIN
     Route: 042
     Dates: start: 20161226, end: 20161226
  8. METHOTREXATE BIODIM 25 MG/ML [Suspect]
     Active Substance: METHOTREXATE SODIUM
     Route: 037
     Dates: start: 20161226, end: 20161226
  9. ENDOXAN [Suspect]
     Active Substance: CYCLOPHOSPHAMIDE
     Route: 042
     Dates: start: 20161226, end: 20161226

REACTIONS (6)
  - Headache [Recovered/Resolved]
  - Rash [Recovered/Resolved]
  - Nausea [Recovered/Resolved]
  - Oedema [Recovered/Resolved]
  - Conjunctivitis [Recovered/Resolved]
  - Pyrexia [Recovered/Resolved]

NARRATIVE: CASE EVENT DATE: 20161227
